FAERS Safety Report 6876037-X (Version None)
Quarter: 2010Q2

REPORT INFORMATION
  Report Type: 
  Country: None (occurrence: None)
  Receive Date: 20100616
  Receipt Date: 20100401
  Transmission Date: 20101027
  Serious: No
  Sender: FDA-Public Use
  Company Number: DSA_42875_2010

PATIENT
  Sex: Female

DRUGS (9)
  1. XENAZINE [Suspect]
     Indication: TORTICOLLIS
     Dosage: (12.5 MG EVERY AM, 25 MG EVERY NOON, 25 MG EVERY NIGHT ORAL)
     Route: 048
     Dates: start: 20100201
  2. BENICAR [Concomitant]
  3. VESICARE [Concomitant]
  4. SULAR [Concomitant]
  5. HYDROCHLOROTHIAZIDE [Concomitant]
  6. VITAMIN A /00056001/ [Concomitant]
  7. VITAMIN D [Concomitant]
  8. VYTORIN [Concomitant]
  9. METFORMIN HCL [Concomitant]

REACTIONS (2)
  - DYSPHAGIA [None]
  - OROPHARYNGEAL PAIN [None]
